FAERS Safety Report 13271927 (Version 1)
Quarter: 2017Q1

REPORT INFORMATION
  Report Type: Spontaneous
  Country: US (occurrence: US)
  Receive Date: 20170227
  Receipt Date: 20170227
  Transmission Date: 20170428
  Serious: No
  Sender: FDA-Public Use
  Company Number: US-ASTRAZENECA-2017SE18195

PATIENT
  Sex: Female
  Weight: 40.8 kg

DRUGS (4)
  1. KETOROLAC TROMETHAMINE. [Concomitant]
     Active Substance: KETOROLAC TROMETHAMINE
     Indication: PAIN
     Dosage: 10.0MG UNKNOWN
     Route: 065
  2. GOLYTELY [Concomitant]
     Active Substance: POLYETHYLENE GLYCOL 3350\POTASSIUM CHLORIDE\SODIUM BICARBONATE\SODIUM CHLORIDE\SODIUM SULFATE ANHYDROUS
     Indication: SUPPLEMENTATION THERAPY
  3. MOVANTIK [Suspect]
     Active Substance: NALOXEGOL OXALATE
     Indication: CONSTIPATION
     Dosage: 25.0MG UNKNOWN
     Route: 048
     Dates: start: 20160214
  4. TYLENOL WITH CODEINE [Concomitant]
     Active Substance: ACETAMINOPHEN\CODEINE PHOSPHATE
     Indication: PAIN
     Dosage: 300MG-30MG
     Route: 065
     Dates: start: 20170208, end: 20170211

REACTIONS (6)
  - Body height decreased [Unknown]
  - Weight decreased [Unknown]
  - Pain [Unknown]
  - Feeding disorder [Unknown]
  - Gait disturbance [Unknown]
  - Memory impairment [Unknown]
